FAERS Safety Report 5811351-8 (Version None)
Quarter: 2008Q3

REPORT INFORMATION
  Report Type: 
  Country: None (occurrence: None)
  Receive Date: 20080711
  Receipt Date: 20071204
  Transmission Date: 20090109
  Serious: Yes (Hospitalization)
  Sender: FDA-Public Use
  Company Number: 07H-163-0313539-00

PATIENT
  Age: 52 Year
  Sex: Female

DRUGS (4)
  1. PROMETHAZINE HCL [Suspect]
     Indication: NAUSEA
     Dates: start: 20070101, end: 20070101
  2. PEGASYS [Suspect]
     Indication: HEPATITIS C VIRUS TEST
     Dosage: 180 MCG WEEKLY, INJECTION
     Dates: start: 20070511
  3. RIBAVIRIN [Suspect]
     Indication: HEPATITIS C VIRUS TEST
     Dosage: 1000 MG, DAILY,
     Dates: start: 20070511
  4. UNSPECIFIED HEART PALPITATION MEDICATION [Concomitant]

REACTIONS (1)
  - DRUG INTOLERANCE [None]
